FAERS Safety Report 12162615 (Version 1)
Quarter: 2016Q1

REPORT INFORMATION
  Report Type: Spontaneous
  Country: US (occurrence: None)
  Receive Date: 20160308
  Receipt Date: 20160308
  Transmission Date: 20160526
  Serious: No
  Sender: FDA-Public Use
  Company Number: None

PATIENT
  Age: 55 Year
  Sex: Male
  Weight: 118.84 kg

DRUGS (10)
  1. THORAZINE [Concomitant]
     Active Substance: CHLORPROMAZINE
  2. MULTIVITAMIN [Concomitant]
     Active Substance: VITAMINS
  3. ATIVAN [Concomitant]
     Active Substance: LORAZEPAM
  4. RISPERDAL [Concomitant]
     Active Substance: RISPERIDONE
  5. LISONOPRIL [Concomitant]
  6. MELATONIN [Concomitant]
     Active Substance: MELATONIN
  7. TRILEPTAL [Concomitant]
     Active Substance: OXCARBAZEPINE
  8. LAMICTAL [Suspect]
     Active Substance: LAMOTRIGINE
     Indication: BIPOLAR DISORDER
     Route: 048
     Dates: start: 20160201, end: 20160216
  9. AMLODIPINE [Concomitant]
     Active Substance: AMLODIPINE BESYLATE
  10. VITAMIN B COMPLEX [Concomitant]
     Active Substance: CYANOCOBALAMIN\DEXPANTHENOL\NIACINAMIDE\PYRIDOXINE HYDROCHLORIDE\RIBOFLAVIN 5^-PHOSPHATE SODIUM\THIAMINE HYDROCHLORIDE\VITAMIN B COMPLEX

REACTIONS (2)
  - Delusion [None]
  - Stevens-Johnson syndrome [None]

NARRATIVE: CASE EVENT DATE: 20160217
